FAERS Safety Report 19440507 (Version 1)
Quarter: 2021Q2

REPORT INFORMATION
  Report Type: Spontaneous
  Country: US (occurrence: US)
  Receive Date: 20210621
  Receipt Date: 20210621
  Transmission Date: 20210717
  Serious: Yes (Hospitalization, Other)
  Sender: FDA-Public Use
  Company Number: US-STRIDES ARCOLAB LIMITED-2020SP014793

PATIENT
  Age: 27 Year
  Sex: Female
  Weight: 160 kg

DRUGS (14)
  1. MIRTAZAPINE. [Concomitant]
     Active Substance: MIRTAZAPINE
     Indication: PRODUCT USED FOR UNKNOWN INDICATION
     Dosage: 30MG PER DAY AT BEDTIME
     Route: 065
  2. PRAZOSIN. [Concomitant]
     Active Substance: PRAZOSIN
     Indication: PRODUCT USED FOR UNKNOWN INDICATION
     Dosage: 5MG PER DAY AT BEDTIME
     Route: 065
  3. TRAZODONE [Concomitant]
     Active Substance: TRAZODONE HYDROCHLORIDE
     Indication: PRODUCT USED FOR UNKNOWN INDICATION
     Dosage: 150MG PER DAY AT BEDTIME
     Route: 065
  4. GLUCAGON. [Concomitant]
     Active Substance: GLUCAGON
     Indication: HYPOGLYCAEMIA
     Dosage: RECEIVED THREE 1 MG DOSES OF INTRAMUSCULAR GLUCAGON, OVER THE NEXT FOUR HOURS
     Route: 030
  5. LANTUS [Concomitant]
     Active Substance: INSULIN GLARGINE
     Indication: SUICIDE ATTEMPT
     Dosage: SELF?INJECTION OF 900 UNITS INTO ABDOMEN
     Route: 058
  6. HYDROCORTISONE. [Suspect]
     Active Substance: HYDROCORTISONE
     Indication: HYPOGLYCAEMIA
     Dosage: 100 MILLIGRAM,
     Route: 040
  7. DEXTROSE. [Concomitant]
     Active Substance: DEXTROSE
     Dosage: RECEIVED TWO 50?GRAM AMPULES OF DEXTROSE 50 PERCENT
     Route: 042
  8. HYDROCORTISONE. [Suspect]
     Active Substance: HYDROCORTISONE
     Dosage: 100 MILLIGRAM, EVERY 8 HRS
     Route: 042
  9. GLUCAGON. [Concomitant]
     Active Substance: GLUCAGON
     Dosage: 1 MILLIGRAM, EVERY HOUR
     Route: 042
  10. DULOXETINE. [Concomitant]
     Active Substance: DULOXETINE
     Indication: PRODUCT USED FOR UNKNOWN INDICATION
     Dosage: 120 MILLIGRAM PER DAY
     Route: 065
  11. DEXTROSE. [Concomitant]
     Active Substance: DEXTROSE
     Indication: HYPOGLYCAEMIA
     Dosage: 10 PERCENT INFUSION WAS STARTED AT 300 ML/HOUR 30 MINUTES
     Route: 042
  12. BUPROPION. [Concomitant]
     Active Substance: BUPROPION
     Indication: PRODUCT USED FOR UNKNOWN INDICATION
     Dosage: 300 MILLIGRAM PER DAY
     Route: 065
  13. LITHIUM. [Concomitant]
     Active Substance: LITHIUM
     Indication: PRODUCT USED FOR UNKNOWN INDICATION
     Dosage: 900 MILLIGRAM PER DAY
     Route: 065
  14. GLUCAGON. [Concomitant]
     Active Substance: GLUCAGON
     Dosage: RECEIVED ELEVEN 1 MG IM GLUCAGON DOSES IN ADDITION TO THE D10 IV INFUSION DURING FIRT FOUR HOURS
     Route: 030

REACTIONS (2)
  - Off label use [Unknown]
  - Hyperglycaemia [Recovered/Resolved]
